FAERS Safety Report 4541794-4 (Version None)
Quarter: 2004Q4

REPORT INFORMATION
  Report Type: 
  Country: None (occurrence: None)
  Receive Date: 20041230
  Receipt Date: 20041117
  Transmission Date: 20050328
  Serious: Yes (Hospitalization)
  Sender: FDA-Public Use
  Company Number: 200413595JP

PATIENT
  Age: 39 Year
  Sex: Female

DRUGS (10)
  1. KETEK [Suspect]
     Indication: BRONCHITIS ACUTE
     Route: 048
     Dates: start: 20041102, end: 20041103
  2. KETEK [Suspect]
     Indication: PHARYNGITIS
     Route: 048
     Dates: start: 20041102, end: 20041103
  3. LINCOCIN [Concomitant]
     Indication: BRONCHITIS ACUTE
     Route: 042
     Dates: start: 20041102, end: 20041102
  4. LINCOCIN [Concomitant]
     Indication: PHARYNGITIS
     Route: 042
     Dates: start: 20041102, end: 20041102
  5. PL GRAN. [Concomitant]
     Indication: BRONCHITIS ACUTE
     Route: 048
     Dates: start: 20041102, end: 20041103
  6. PL GRAN. [Concomitant]
     Indication: PHARYNGITIS
     Route: 048
     Dates: start: 20041102, end: 20041103
  7. LORCAM [Concomitant]
     Indication: BRONCHITIS ACUTE
     Route: 048
     Dates: start: 20041102, end: 20041103
  8. LORCAM [Concomitant]
     Indication: PHARYNGITIS
     Route: 048
     Dates: start: 20041102, end: 20041103
  9. SELBEX [Concomitant]
     Indication: BRONCHITIS ACUTE
     Route: 048
     Dates: start: 20041102, end: 20041103
  10. SELBEX [Concomitant]
     Indication: PHARYNGITIS
     Route: 048
     Dates: start: 20041102, end: 20041103

REACTIONS (1)
  - HERPES ZOSTER [None]
